FAERS Safety Report 7606171-8 (Version None)
Quarter: 2011Q3

REPORT INFORMATION
  Report Type: 
  Country: None (occurrence: None)
  Receive Date: 20110705
  Receipt Date: 20110620
  Transmission Date: 20111222
  Serious: Yes (Life-Threatening, Hospitalization, Other)
  Sender: FDA-Public Use
  Company Number: 2011MA007768

PATIENT
  Age: 30 Year
  Sex: Female

DRUGS (6)
  1. PHENOBARBITAL TAB [Suspect]
  2. PROMETHAZINE [Concomitant]
  3. CARISOPRODOL [Suspect]
     Indication: OVERDOSE
     Dosage: 21 G
  4. QUETIAPINE [Concomitant]
  5. CLONAZEPAM [Concomitant]
  6. METHADONE HCL [Concomitant]

REACTIONS (6)
  - TACHYCARDIA [None]
  - TACHYPNOEA [None]
  - GRAND MAL CONVULSION [None]
  - EYE MOVEMENT DISORDER [None]
  - OVERDOSE [None]
  - PUPILLARY REFLEX IMPAIRED [None]
